FAERS Safety Report 4433925-1 (Version None)
Quarter: 2004Q3

REPORT INFORMATION
  Report Type: 
  Country: None (occurrence: None)
  Receive Date: 20040825
  Receipt Date: 20040825
  Transmission Date: 20050211
  Serious: Yes (Other)
  Sender: FDA-Public Use
  Company Number: None

PATIENT
  Age: 28 Year
  Sex: Female
  Weight: 51 kg

DRUGS (2)
  1. OFLOXACIN [Suspect]
     Indication: BLOOD URINE
     Dosage: 200 MG 1 TAB ORAL
     Route: 048
     Dates: start: 20040824, end: 20040824
  2. OFLOXACIN [Suspect]
     Indication: URINARY TRACT INFECTION
     Dosage: 200 MG 1 TAB ORAL
     Route: 048
     Dates: start: 20040824, end: 20040824

REACTIONS (6)
  - ARTHRALGIA [None]
  - BACK PAIN [None]
  - FORMICATION [None]
  - PAIN IN EXTREMITY [None]
  - PARAESTHESIA [None]
  - SKIN BURNING SENSATION [None]
